FAERS Safety Report 6430302-9 (Version None)
Quarter: 2009Q4

REPORT INFORMATION
  Report Type: 
  Country: None (occurrence: None)
  Receive Date: 20091106
  Receipt Date: 20091103
  Transmission Date: 20100525
  Serious: Yes (Death)
  Sender: FDA-Public Use
  Company Number: TR-ASTRAZENECA-2009SE24281

PATIENT
  Age: 47 Year
  Sex: Male

DRUGS (1)
  1. SYMBICORT [Suspect]
     Indication: ASTHMA
     Dosage: 320/9MCG/DOSE
     Route: 055
     Dates: start: 20090924

REACTIONS (1)
  - SUDDEN DEATH [None]
